FAERS Safety Report 9077819 (Version 1)
Quarter: 2013Q1

REPORT INFORMATION
  Report Type: Report from Study
  Country: US (occurrence: US)
  Receive Date: 20130130
  Receipt Date: 20130130
  Transmission Date: 20140127
  Serious: No
  Sender: FDA-Public Use
  Company Number: US-ABBOTT-12P-163-0966989-00

PATIENT
  Age: 20 Year
  Sex: Female

DRUGS (3)
  1. HUMIRA 40 MG/0.8 ML PEN [Suspect]
     Indication: CROHN^S DISEASE
  2. PENTASA [Concomitant]
     Indication: CROHN^S DISEASE
     Dosage: DAILY
  3. IMURAN [Concomitant]
     Indication: CROHN^S DISEASE
     Dosage: DAILY

REACTIONS (4)
  - Dysphonia [Not Recovered/Not Resolved]
  - Laryngitis [Not Recovered/Not Resolved]
  - Productive cough [Not Recovered/Not Resolved]
  - Urticaria [Recovered/Resolved]
